FAERS Safety Report 6303972-3 (Version None)
Quarter: 2009Q3

REPORT INFORMATION
  Report Type: 
  Country: None (occurrence: None)
  Receive Date: 20090810
  Receipt Date: 20090731
  Transmission Date: 20100115
  Serious: Yes (Hospitalization)
  Sender: FDA-Public Use
  Company Number: FR-PFIZER INC-2009248491

PATIENT
  Age: 38 Year

DRUGS (8)
  1. XANAX [Suspect]
     Dosage: UNK
     Route: 048
     Dates: end: 20090701
  2. TAHOR [Suspect]
     Dosage: UNK
     Route: 048
     Dates: end: 20090601
  3. TENORMIN [Suspect]
     Dosage: UNK
     Route: 048
     Dates: start: 20090401
  4. KARDEGIC [Suspect]
     Indication: ACUTE CORONARY SYNDROME
     Dosage: UNK
     Route: 048
     Dates: start: 20090401
  5. PLAVIX [Suspect]
     Indication: ACUTE CORONARY SYNDROME
     Dosage: 75 MG, UNK
     Route: 048
     Dates: start: 20090401
  6. COVERSYL [Suspect]
     Dosage: UNK
     Route: 048
     Dates: start: 20090401, end: 20090701
  7. NICOPATCH [Concomitant]
  8. CERAZETTE [Concomitant]

REACTIONS (1)
  - CYTOLYTIC HEPATITIS [None]
